FAERS Safety Report 7090682-0 (Version None)
Quarter: 2010Q4

REPORT INFORMATION
  Report Type: 
  Country: None (occurrence: None)
  Receive Date: 20101109
  Receipt Date: 20091113
  Transmission Date: 20110411
  Serious: No
  Sender: FDA-Public Use
  Company Number: US-KINGPHARMUSA00001-K200901425

PATIENT
  Age: 82 Year
  Sex: Female

DRUGS (2)
  1. FLECTOR [Suspect]
     Indication: MUSCULOSKELETAL PAIN
     Dosage: UNK
     Route: 061
     Dates: start: 20091111
  2. PLAQUENIL [Concomitant]
     Dosage: UNK

REACTIONS (3)
  - DIZZINESS [None]
  - NAUSEA [None]
  - PRESYNCOPE [None]
